FAERS Safety Report 21606280 (Version 2)
Quarter: 2022Q4

REPORT INFORMATION
  Report Type: Spontaneous
  Country: US (occurrence: US)
  Receive Date: 20221117
  Receipt Date: 20221202
  Transmission Date: 20230113
  Serious: No
  Sender: FDA-Public Use
  Company Number: US-ViiV Healthcare Limited-87487

PATIENT
  Age: 31 Year
  Sex: Male

DRUGS (13)
  1. RILPIVIRINE [Suspect]
     Active Substance: RILPIVIRINE
     Indication: HIV infection
     Dosage: UNK (FIRST DOSE)
     Route: 030
     Dates: start: 20220328
  2. RILPIVIRINE [Suspect]
     Active Substance: RILPIVIRINE
     Dosage: UNK EVERY 2 MONTHS (SECOND DOSE)
     Route: 030
     Dates: start: 20220427
  3. RILPIVIRINE [Suspect]
     Active Substance: RILPIVIRINE
     Dosage: UNK EVERY 2 MONTHS (THIRD DOSE)
     Route: 030
     Dates: start: 20220624
  4. RILPIVIRINE [Suspect]
     Active Substance: RILPIVIRINE
     Dosage: UNK EVERY 2 MONTHS (FOURTH DOSE)
     Route: 030
     Dates: start: 20220812
  5. RILPIVIRINE [Suspect]
     Active Substance: RILPIVIRINE
     Dosage: UNK EVERY 2 MONTHS (FIFTH DOSE)
     Route: 030
     Dates: start: 20221004
  6. CABOTEGRAVIR [Suspect]
     Active Substance: CABOTEGRAVIR
     Indication: HIV infection
     Dosage: UNK (FIRST DOSE)
     Route: 030
     Dates: start: 20220328
  7. CABOTEGRAVIR [Suspect]
     Active Substance: CABOTEGRAVIR
     Dosage: UNK EVERY 2 MONTHS (SECOND DOSE)
     Route: 030
     Dates: start: 20220427
  8. CABOTEGRAVIR [Suspect]
     Active Substance: CABOTEGRAVIR
     Dosage: UNK EVERY 2 MONTHS (THIRD DOSE)
     Route: 030
     Dates: start: 20220624
  9. CABOTEGRAVIR [Suspect]
     Active Substance: CABOTEGRAVIR
     Dosage: UNK EVERY 2 MONTHS (FOURTH DOSE)
     Route: 030
     Dates: start: 20220812
  10. CABOTEGRAVIR [Suspect]
     Active Substance: CABOTEGRAVIR
     Dosage: UNK EVERY 2 MONTHS (FIFTH DOSE)
     Route: 030
     Dates: start: 20221004
  11. TRIUMEQ [Concomitant]
     Active Substance: ABACAVIR SULFATE\DOLUTEGRAVIR SODIUM\LAMIVUDINE
     Indication: HIV infection
     Dosage: UNK
     Route: 065
     Dates: start: 20170801
  12. VOCABRIA [Concomitant]
     Active Substance: CABOTEGRAVIR SODIUM
     Dosage: UNK
     Route: 048
     Dates: start: 20220226, end: 20220328
  13. EDURANT [Concomitant]
     Active Substance: RILPIVIRINE HYDROCHLORIDE
     Indication: HIV infection
     Dosage: UNK
     Route: 048
     Dates: start: 20220226, end: 20220328

REACTIONS (4)
  - Viraemia [Unknown]
  - Blood HIV RNA increased [Unknown]
  - Weight decreased [Unknown]
  - Therapeutic response unexpected [Unknown]

NARRATIVE: CASE EVENT DATE: 20220101
